FAERS Safety Report 7387971-9 (Version None)
Quarter: 2011Q2

REPORT INFORMATION
  Report Type: 
  Country: None (occurrence: None)
  Receive Date: 20110401
  Receipt Date: 20110321
  Transmission Date: 20111010
  Serious: Yes (Hospitalization)
  Sender: FDA-Public Use
  Company Number: US-BIOGENIDEC-2011BI002793

PATIENT
  Age: 55 Year
  Sex: Male
  Weight: 116 kg

DRUGS (2)
  1. METHADONE [Concomitant]
     Indication: PAIN
  2. TYSABRI [Suspect]
     Indication: MULTIPLE SCLEROSIS
     Route: 042
     Dates: start: 20101227, end: 20110221

REACTIONS (9)
  - INFLUENZA LIKE ILLNESS [None]
  - TREMOR [None]
  - HEADACHE [None]
  - HYPERSENSITIVITY [None]
  - BONE PAIN [None]
  - MYALGIA [None]
  - BACK PAIN [None]
  - CHILLS [None]
  - ARTHRALGIA [None]
